FAERS Safety Report 9728539 (Version 3)
Quarter: 2013Q4

REPORT INFORMATION
  Report Type: Report from Study
  Country: AU (occurrence: AU)
  Receive Date: 20131204
  Receipt Date: 20131221
  Transmission Date: 20140711
  Serious: Yes (Hospitalization)
  Sender: FDA-Public Use
  Company Number: PHHY2013AU141253

PATIENT
  Sex: Female

DRUGS (2)
  1. CLOZARIL [Suspect]
     Dosage: 500 MG, UNK
     Dates: start: 20100608
  2. CLOZARIL [Suspect]
     Dosage: 500 MG, UNK

REACTIONS (2)
  - Schizophrenia [Unknown]
  - Malaise [Unknown]
